FAERS Safety Report 11245402 (Version 2)
Quarter: 2015Q3

REPORT INFORMATION
  Report Type: Spontaneous
  Country: US (occurrence: US)
  Receive Date: 20150707
  Receipt Date: 20150904
  Transmission Date: 20151125
  Serious: No
  Sender: FDA-Public Use
  Company Number: US-PFIZER INC-2015223097

PATIENT
  Age: 71 Year
  Sex: Male
  Weight: 107 kg

DRUGS (1)
  1. CELEBREX [Suspect]
     Active Substance: CELECOXIB
     Indication: OSTEOARTHRITIS
     Dosage: DAILY
     Route: 048

REACTIONS (1)
  - Drug effect incomplete [Recovered/Resolved]
